FAERS Safety Report 6691588-9 (Version None)
Quarter: 2010Q2

REPORT INFORMATION
  Report Type: 
  Country: None (occurrence: None)
  Receive Date: 20100422
  Receipt Date: 20100331
  Transmission Date: 20101027
  Serious: No
  Sender: FDA-Public Use
  Company Number: US-B.I. PHARMACEUTICALS,INC./RIDGEFIELD-2010-BP-01041BP

PATIENT
  Sex: Male

DRUGS (5)
  1. FLOMAX [Suspect]
     Indication: PROSTATOMEGALY
     Dosage: 0.4 MG
  2. METOPROLOL TARTRATE [Concomitant]
     Dosage: 100 MG
  3. GLIPIZIDE [Concomitant]
  4. METFORMIN HCL [Concomitant]
  5. LEVITRA [Concomitant]

REACTIONS (1)
  - DYSURIA [None]
